FAERS Safety Report 8267495-7 (Version None)
Quarter: 2012Q2

REPORT INFORMATION
  Report Type: 
  Country: None (occurrence: None)
  Receive Date: 20120409
  Receipt Date: 20120405
  Transmission Date: 20120825
  Serious: Yes (Death)
  Sender: FDA-Public Use
  Company Number: PHHY2012CA017732

PATIENT
  Sex: Female

DRUGS (6)
  1. REMERON [Concomitant]
  2. DIAZEPAM [Concomitant]
  3. ZOLEDRONOC ACID [Suspect]
     Indication: OSTEOPOROSIS
     Dosage: UNK
     Route: 042
     Dates: start: 20111031
  4. LASIX [Concomitant]
  5. ZYPREXA [Concomitant]
  6. SPIRIVA [Concomitant]

REACTIONS (1)
  - PNEUMONIA [None]
